FAERS Safety Report 8490338-3 (Version None)
Quarter: 2012Q3

REPORT INFORMATION
  Report Type: 
  Country: None (occurrence: None)
  Receive Date: 20120705
  Receipt Date: 20120629
  Transmission Date: 20120928
  Serious: Yes (Other)
  Sender: FDA-Public Use
  Company Number: BR-PFIZER INC-2012156869

PATIENT

DRUGS (1)
  1. IBUPROFEN (ADVIL) [Suspect]
     Dosage: UNK
     Route: 048

REACTIONS (6)
  - HYPOAESTHESIA [None]
  - SWELLING FACE [None]
  - PRURITUS GENERALISED [None]
  - GENERALISED ERYTHEMA [None]
  - THROAT TIGHTNESS [None]
  - HYPERSENSITIVITY [None]
